FAERS Safety Report 5878605-0 (Version None)
Quarter: 2008Q3

REPORT INFORMATION
  Report Type: 
  Country: None (occurrence: None)
  Receive Date: 20080909
  Receipt Date: 20080903
  Transmission Date: 20090109
  Serious: Yes (Hospitalization)
  Sender: FDA-Public Use
  Company Number: 2008SP000034

PATIENT
  Age: 2 Year
  Sex: Female

DRUGS (1)
  1. BETAMETHASONE [Suspect]
     Indication: EAR PAIN
     Dosage: 120 GTT; ONCE; PO
     Route: 048
     Dates: start: 20071202, end: 20071202

REACTIONS (3)
  - CONFUSIONAL STATE [None]
  - MALAISE [None]
  - PYREXIA [None]
